FAERS Safety Report 9637797 (Version 2)
Quarter: 2013Q4

REPORT INFORMATION
  Report Type: Spontaneous
  Country: IT (occurrence: IT)
  Receive Date: 20131022
  Receipt Date: 20131217
  Transmission Date: 20140711
  Serious: Yes (Hospitalization)
  Sender: FDA-Public Use
  Company Number: IT-ABBVIE-13P-083-1159885-00

PATIENT
  Age: 58 Year
  Sex: Male

DRUGS (13)
  1. DEPAKINE CHRONO [Suspect]
     Indication: DEPRESSION
     Dosage: 0.5 DOSAGE FORMS (EXTENDED-RELEASE)
     Route: 048
  2. DEPAKINE CHRONO [Suspect]
     Indication: DRUG ABUSE
     Dosage: 5 DOSAGE FORMS, IN TOTAL (EXTENDED-RELEASE)
     Route: 048
     Dates: start: 20130929, end: 20130929
  3. LORAZEPAM [Suspect]
     Indication: DEPRESSION
     Route: 048
  4. LORAZEPAM [Suspect]
     Indication: DRUG ABUSE
     Dosage: 4 DOSAGE FORMS, IN TOTAL
     Route: 048
     Dates: start: 20130929, end: 20130929
  5. TACHIDOL [Suspect]
     Indication: INTENTIONAL SELF-INJURY
     Dosage: 4 DOSAGE FORMS, IN TOTAL
     Route: 048
     Dates: start: 20130929, end: 20130929
  6. GLICLAZIDE [Concomitant]
     Indication: PRODUCT USED FOR UNKNOWN INDICATION
  7. ZOLPIDEM TARTRATE [Concomitant]
     Indication: PRODUCT USED FOR UNKNOWN INDICATION
  8. QUETIAPINE FUMARATE [Concomitant]
     Indication: PRODUCT USED FOR UNKNOWN INDICATION
  9. LIRAGLUTIDE [Concomitant]
     Indication: PRODUCT USED FOR UNKNOWN INDICATION
  10. METFORMIN HYDROCHLORIDE [Concomitant]
     Indication: PRODUCT USED FOR UNKNOWN INDICATION
  11. TAMSULOSIN HYDROCHLORIDE [Concomitant]
     Indication: PRODUCT USED FOR UNKNOWN INDICATION
  12. SIMVASTATIN [Concomitant]
     Indication: PRODUCT USED FOR UNKNOWN INDICATION
  13. DULOXETINE HYDROCHLORIDE [Concomitant]
     Indication: PRODUCT USED FOR UNKNOWN INDICATION

REACTIONS (4)
  - Disorientation [Recovering/Resolving]
  - Asthenia [Recovering/Resolving]
  - Intentional self-injury [Recovering/Resolving]
  - Tremor [Recovering/Resolving]
